FAERS Safety Report 15360348 (Version 1)
Quarter: 2018Q3

REPORT INFORMATION
  Report Type: Spontaneous
  Country: DE (occurrence: DE)
  Receive Date: 20180907
  Receipt Date: 20180907
  Transmission Date: 20181010
  Serious: Yes (Other)
  Sender: FDA-Public Use
  Company Number: DE-HIKMA PHARMACEUTICALS USA INC.-DE-H14001-18-07249

PATIENT
  Age: 63 Year
  Sex: Female

DRUGS (4)
  1. FLUOROURACIL. [Suspect]
     Active Substance: FLUOROURACIL
     Indication: ADENOCARCINOMA PANCREAS
     Dosage: CYTOSTATIC THERAPY WAS ADMINISTERED IN REDUCED DOSE (75%). () ; CYCLICAL
     Route: 065
     Dates: start: 201607
  2. FOLINIC ACID [Suspect]
     Active Substance: LEUCOVORIN
     Indication: ADENOCARCINOMA PANCREAS
     Dosage: CYTOSTATIC THERAPY WAS ADMINISTERED IN REDUCED DOSE (75%). () ; CYCLICAL
     Route: 065
     Dates: start: 201607
  3. OXALIPLATIN. [Suspect]
     Active Substance: OXALIPLATIN
     Indication: ADENOCARCINOMA PANCREAS
     Dosage: CYTOSTATIC THERAPY WAS ADMINISTERED IN REDUCED DOSE (75%). () ; CYCLICAL
     Route: 065
     Dates: start: 201607
  4. IRINOTECAN [Suspect]
     Active Substance: IRINOTECAN
     Indication: METASTASIS
     Dosage: CYTOSTATIC THERAPY WAS ADMINISTERED IN REDUCED DOSE (75%). () ; CYCLICAL
     Route: 065
     Dates: start: 201607

REACTIONS (1)
  - Polyneuropathy [Unknown]

NARRATIVE: CASE EVENT DATE: 2016
